FAERS Safety Report 9813711 (Version 1)
Quarter: 2014Q1

REPORT INFORMATION
  Report Type: Spontaneous
  Country: US (occurrence: US)
  Receive Date: 20140113
  Receipt Date: 20140113
  Transmission Date: 20141002
  Serious: Yes (Other)
  Sender: FDA-Public Use
  Company Number: US-BRISTOL-MYERS SQUIBB COMPANY-19989193

PATIENT
  Sex: 0

DRUGS (2)
  1. WARFARIN SODIUM [Suspect]
  2. CYCLOSPORINE [Concomitant]

REACTIONS (1)
  - Renal transplant [Unknown]
